FAERS Safety Report 20387726 (Version 1)
Quarter: 2022Q1

REPORT INFORMATION
  Report Type: Spontaneous
  Country: US (occurrence: US)
  Receive Date: 20220127
  Receipt Date: 20220127
  Transmission Date: 20220424
  Serious: No
  Sender: FDA-Public Use
  Company Number: US-ALLERGAN-2138113US

PATIENT
  Sex: Female

DRUGS (2)
  1. BOTOX [Suspect]
     Active Substance: ONABOTULINUMTOXINA
     Indication: Muscle spasticity
     Dosage: 400 UNITS, SINGLE
     Dates: start: 20210728, end: 20210728
  2. BOTOX [Suspect]
     Active Substance: ONABOTULINUMTOXINA
     Indication: Automatic bladder

REACTIONS (1)
  - Off label use [Unknown]
